FAERS Safety Report 10094700 (Version 1)
Quarter: 2014Q2

REPORT INFORMATION
  Report Type: Spontaneous
  Country: FR (occurrence: None)
  Receive Date: 20140418
  Receipt Date: 20140418
  Transmission Date: 20141212
  Serious: Yes (Hospitalization)
  Sender: FDA-Public Use
  Company Number: 2286473

PATIENT
  Age: 68 Year
  Sex: Male
  Weight: 66.7 kg

DRUGS (11)
  1. CARBOPLATIN [Suspect]
     Indication: PRODUCT USED FOR UNKNOWN INDICATION
     Dosage: INTRAVENOUS (NOT OTHERWISE SPECIFIED)
     Route: 042
     Dates: start: 20140204
  2. PACLITAXEL SANDOZ [Suspect]
     Indication: PRODUCT USED FOR UNKNOWN INDICATION
     Dosage: INTRAVENOUS (NOT OTHERWISE SPECIFIED)
     Route: 042
     Dates: start: 20140204
  3. ROCEPHINE [Suspect]
     Indication: PRODUCT USED FOR UNKNOWN INDICATION
     Dosage: 1 G GRAM (1 DAY)
     Dates: start: 20140209, end: 20140214
  4. PREVISCAN /00261401/ [Concomitant]
  5. HEMIGOXINE NATIVELLE [Concomitant]
  6. TRANSIPEG  /00754501/ [Concomitant]
  7. SKENAN [Concomitant]
  8. DOLIPRANE [Concomitant]
  9. VENTOLINE /00139501/ [Concomitant]
  10. BECOTIDE [Concomitant]
  11. SEREVENT [Concomitant]

REACTIONS (10)
  - Renal tubular necrosis [None]
  - Haematuria [None]
  - International normalised ratio increased [None]
  - Renal failure acute [None]
  - Purpura [None]
  - Rash maculo-papular [None]
  - Prurigo [None]
  - Blood immunoglobulin A increased [None]
  - Erythema [None]
  - Deafness neurosensory [None]
